FAERS Safety Report 9264073 (Version 4)
Quarter: 2013Q4

REPORT INFORMATION
  Report Type: Spontaneous
  Country: FR (occurrence: FR)
  Receive Date: 20130430
  Receipt Date: 20131023
  Transmission Date: 20140711
  Serious: Yes (Hospitalization)
  Sender: FDA-Public Use
  Company Number: FR-TEVA-399985ISR

PATIENT
  Age: 21 Year
  Sex: Female

DRUGS (6)
  1. COPAXONE [Suspect]
     Indication: MULTIPLE SCLEROSIS
     Dates: start: 20130218, end: 20130417
  2. COPAXONE [Suspect]
     Dates: start: 201304
  3. ZOLOFT 50MG [Concomitant]
     Indication: ANXIETY
     Dosage: 1 DOSAGE FORMS DAILY;
     Route: 048
     Dates: start: 201303
  4. TEMESTA 1MG [Concomitant]
     Indication: ANXIETY
     Route: 048
     Dates: start: 201303
  5. TEMESTA 1MG [Concomitant]
     Indication: DEPRESSION
  6. TEMESTA 1MG [Concomitant]
     Indication: OBSESSIVE-COMPULSIVE DISORDER

REACTIONS (6)
  - Appendicitis [Recovered/Resolved]
  - Obsessive-compulsive disorder [Recovering/Resolving]
  - Depression [Unknown]
  - Anxiety [Recovering/Resolving]
  - Abnormal behaviour [Unknown]
  - Nervousness [Unknown]
